FAERS Safety Report 18518529 (Version 1)
Quarter: 2020Q4

REPORT INFORMATION
  Report Type: Spontaneous
  Country: US (occurrence: US)
  Receive Date: 20201118
  Receipt Date: 20201118
  Transmission Date: 20210114
  Serious: No
  Sender: FDA-Public Use
  Company Number: US-ANIPHARMA-2020-US-000573

PATIENT
  Age: 86 Year
  Sex: Female
  Weight: 58.97 kg

DRUGS (4)
  1. FLECAINIDE ACETATE TABLETS 100 MG [Suspect]
     Active Substance: FLECAINIDE ACETATE
     Indication: ARRHYTHMIA
     Dosage: 1 AN AM AND 1 IN PM
     Route: 048
     Dates: start: 201908
  2. METROPOLOL [Concomitant]
     Active Substance: METOPROLOL
     Dosage: 50MG TWICE A DAY
  3. UNSPECIFIED VITAMINS [Concomitant]
     Active Substance: VITAMINS
  4. XARELTO [Concomitant]
     Active Substance: RIVAROXABAN
     Dosage: 15MG ONCE A DAY

REACTIONS (3)
  - Drug ineffective [Unknown]
  - Blood pressure decreased [Unknown]
  - Blood pressure increased [Unknown]

NARRATIVE: CASE EVENT DATE: 201901
